FAERS Safety Report 21832860 (Version 1)
Quarter: 2023Q1

REPORT INFORMATION
  Report Type: Spontaneous
  Country: US (occurrence: US)
  Receive Date: 20230106
  Receipt Date: 20230106
  Transmission Date: 20230417
  Serious: No
  Sender: FDA-Public Use
  Company Number: US-BAUSCH-BL-2023-000109

PATIENT
  Sex: Female

DRUGS (1)
  1. METROGEL VAGINAL [Suspect]
     Active Substance: METRONIDAZOLE
     Indication: Bacterial vaginosis
     Route: 067

REACTIONS (2)
  - Application site pain [Unknown]
  - Application site pruritus [Unknown]
